FAERS Safety Report 8625524-2 (Version None)
Quarter: 2012Q3

REPORT INFORMATION
  Report Type: 
  Country: None (occurrence: None)
  Receive Date: 20120827
  Receipt Date: 20120821
  Transmission Date: 20120928
  Serious: Yes (Death, Other)
  Sender: FDA-Public Use
  Company Number: NO-PFIZER INC-2011240772

PATIENT
  Age: 49 Year
  Sex: Male

DRUGS (14)
  1. BLEOMYCIN SULFATE [Suspect]
     Indication: HODGKIN'S DISEASE
     Dosage: 10000 IU, DAY 8 (2 ESCALATED CYCLES)
     Route: 042
  2. PROCARBAZINE HYDROCHLORIDE [Suspect]
     Indication: HODGKIN'S DISEASE
     Dosage: 100 MG/M2, DAY 1-7 (2 ESCALATED CYCLES)
     Route: 048
  3. VINCRISTINE [Suspect]
     Indication: HODGKIN'S DISEASE
     Dosage: 1.4 MG/M2, DAY 8  (2 ESCALATED CYCLES)
     Route: 042
  4. CYCLOPHOSPHAMIDE [Suspect]
     Dosage: 650 MG/M2, DAY 1 (4 STANDARD CYCLES)
     Route: 042
  5. PREDNISOLONE [Suspect]
     Dosage: 40 MG/M2, DAY 1-14 (4 STANDARD CYCLES)
     Route: 048
  6. DOXORUBICIN HCL [Suspect]
     Dosage: 25 MG/M2, DAY 1 (4 STANDARD CYCLES)
     Route: 042
  7. ETOPOSIDE [Suspect]
     Dosage: 100 MG/M2, DAY 1-3 (4 STANDARD CYCLES)
     Route: 042
  8. PROCARBAZINE HYDROCHLORIDE [Suspect]
     Dosage: 100 MG/M2, DAY 1-7 (4 STANDARD CYCLES)
     Route: 048
  9. ETOPOSIDE [Suspect]
     Indication: HODGKIN'S DISEASE
     Dosage: 200 MG/M2, DAY 1-3 (2 ESCALATED CYCLES)
     Route: 042
  10. DOXORUBICIN HCL [Suspect]
     Indication: HODGKIN'S DISEASE
     Dosage: 35 MG/M2, DAY 1 (2 ESCALATED CYCLES)
     Route: 042
  11. PREDNISOLONE [Suspect]
     Indication: HODGKIN'S DISEASE
     Dosage: 40 MG/M2, DAY 1-14 (2 ESCALATED CYCLES)
     Route: 048
  12. VINCRISTINE [Suspect]
     Dosage: 1.4 MG/M2, DAY 8 (4 STANDARD CYCLES)
     Route: 042
  13. BLEOMYCIN SULFATE [Suspect]
     Dosage: 10000 IU, DAY 8 (4 STANDARD CYCLES)
     Route: 042
  14. CYCLOPHOSPHAMIDE [Suspect]
     Indication: HODGKIN'S DISEASE
     Dosage: 1250 MG/M2, DAY 1 (2 ESCALATED CYCLES)
     Route: 042

REACTIONS (4)
  - BONE MARROW FAILURE [None]
  - SEPTIC SHOCK [None]
  - PNEUMOCYSTIS JIROVECI PNEUMONIA [None]
  - INFECTION [None]
